FAERS Safety Report 6229233-9 (Version None)
Quarter: 2009Q2

REPORT INFORMATION
  Report Type: 
  Country: None (occurrence: None)
  Receive Date: 20090615
  Receipt Date: 20090605
  Transmission Date: 20091009
  Serious: Yes (Other)
  Sender: FDA-Public Use
  Company Number: JP-ASTRAZENECA-2009SE02510

PATIENT
  Age: 80 Year
  Sex: Male

DRUGS (4)
  1. AMIAS [Suspect]
     Indication: CARDIOVASCULAR EVENT PROPHYLAXIS
     Route: 048
     Dates: start: 20090504, end: 20090518
  2. ASPIRIN [Concomitant]
     Indication: CARDIOVASCULAR EVENT PROPHYLAXIS
     Route: 048
     Dates: start: 20090504
  3. FUROSEMIDE [Concomitant]
     Route: 048
     Dates: start: 20090504
  4. SIMVASTATIN [Concomitant]
     Indication: CARDIOVASCULAR EVENT PROPHYLAXIS
     Route: 048
     Dates: start: 20090504

REACTIONS (3)
  - LIP SWELLING [None]
  - RASH [None]
  - SWELLING FACE [None]
